FAERS Safety Report 20428864 (Version 2)
Quarter: 2022Q1

REPORT INFORMATION
  Report Type: Spontaneous
  Country: SE (occurrence: SE)
  Receive Date: 20220204
  Receipt Date: 20220221
  Transmission Date: 20220424
  Serious: Yes (Death)
  Sender: FDA-Public Use
  Company Number: SE-ASTELLAS-2022US004283

PATIENT
  Age: 70 Year
  Sex: Male

DRUGS (2)
  1. ISAVUCONAZOLE [Suspect]
     Active Substance: ISAVUCONAZOLE
     Indication: Fungal infection
     Dosage: UNK UNK, UNKNOWN FREQ.
     Route: 065
     Dates: start: 20171003
  2. ENALAPRIL [Suspect]
     Active Substance: ENALAPRIL
     Indication: Product used for unknown indication
     Route: 065

REACTIONS (3)
  - Blood creatinine increased [Unknown]
  - Cardiovascular disorder [Fatal]
  - Off label use [Unknown]

NARRATIVE: CASE EVENT DATE: 20171001
